FAERS Safety Report 24840134 (Version 1)
Quarter: 2025Q1

REPORT INFORMATION
  Report Type: Spontaneous
  Country: US (occurrence: None)
  Receive Date: 20250114
  Receipt Date: 20250114
  Transmission Date: 20250408
  Serious: Yes (Hospitalization)
  Sender: FDA-CTU
  Company Number: None

PATIENT
  Age: 62 Year
  Sex: Male
  Weight: 113 kg

DRUGS (7)
  1. CYCLOPHOSPHAMIDE [Suspect]
     Active Substance: CYCLOPHOSPHAMIDE
     Dates: end: 20241125
  2. CYTARABINE [Suspect]
     Active Substance: CYTARABINE
     Dates: end: 20241215
  3. SPRYCEL [Suspect]
     Active Substance: DASATINIB
     Dates: end: 20241222
  4. DEXAMETHASONE [Suspect]
     Active Substance: DEXAMETHASONE
     Dates: end: 20241205
  5. DOXORUBICIN HYDROCHLORIDE [Suspect]
     Active Substance: DOXORUBICIN HYDROCHLORIDE
     Dates: end: 20241125
  6. METHOTREXATE [Suspect]
     Active Substance: METHOTREXATE
     Dates: end: 20241214
  7. VINCRISTINE SULFATE [Suspect]
     Active Substance: VINCRISTINE SULFATE
     Dates: end: 20241202

REACTIONS (5)
  - Nausea [None]
  - Gastrointestinal disorder [None]
  - Febrile neutropenia [None]
  - Rhinovirus infection [None]
  - Haemorrhage intracranial [None]

NARRATIVE: CASE EVENT DATE: 20241223
